FAERS Safety Report 8445913-9 (Version None)
Quarter: 2012Q2

REPORT INFORMATION
  Report Type: 
  Country: None (occurrence: None)
  Receive Date: 20120618
  Receipt Date: 20120613
  Transmission Date: 20120825
  Serious: Yes (Death, Hospitalization)
  Sender: FDA-Public Use
  Company Number: CA-ABBOTT-12P-028-0932462-00

PATIENT
  Sex: Male
  Weight: 65.7 kg

DRUGS (23)
  1. HUMIRA [Suspect]
     Indication: CROHN'S DISEASE
     Route: 058
     Dates: start: 20070406, end: 20100513
  2. CRESTOR [Concomitant]
     Indication: PRODUCT USED FOR UNKNOWN INDICATION
     Dosage: DAILY, AT HOUR OF SLEEP
     Route: 048
  3. LORAZEPAM [Concomitant]
     Indication: INSOMNIA
     Dosage: AT HOUR OF SLEEP AS NEEDED
     Route: 048
  4. CITALOPRAM HYDROBROMIDE [Concomitant]
     Indication: PRODUCT USED FOR UNKNOWN INDICATION
     Dosage: IN THE AM
     Route: 048
  5. TOLOXIN [Concomitant]
     Indication: PRODUCT USED FOR UNKNOWN INDICATION
     Dosage: DAILY, IN THE AM WITH BREAKFAST
  6. SPIRIVA [Concomitant]
     Indication: PRODUCT USED FOR UNKNOWN INDICATION
     Dosage: DAILY, EVERY AM
     Route: 055
  7. ALENDRONATE SODIUM [Concomitant]
     Indication: PRODUCT USED FOR UNKNOWN INDICATION
     Route: 048
  8. D-TABS [Concomitant]
     Indication: VITAMIN SUPPLEMENTATION
     Route: 048
  9. PREVACID [Concomitant]
     Indication: PRODUCT USED FOR UNKNOWN INDICATION
     Route: 048
  10. PREDNISONE [Concomitant]
     Indication: PRODUCT USED FOR UNKNOWN INDICATION
     Dosage: 15MG/DAY/7D, 10MG/DAY/7D, 5MG/DAY/7D
     Route: 048
  11. FLORINEF [Concomitant]
     Indication: PRODUCT USED FOR UNKNOWN INDICATION
     Route: 048
  12. HALOPERIDOL [Concomitant]
     Indication: PRODUCT USED FOR UNKNOWN INDICATION
  13. OXYCODONE HCL [Concomitant]
     Indication: PAIN
     Dosage: EVERY 3 HOURS AS NEEDED
     Route: 048
  14. BRICANYL [Concomitant]
     Indication: DYSPNOEA
     Dosage: 1 INHALATION EVERY 6 HOURS AS NEEDED
     Route: 055
  15. VITAMIN B-12 [Concomitant]
     Indication: PRODUCT USED FOR UNKNOWN INDICATION
     Route: 030
  16. CYPROHEPTADINE HCL [Concomitant]
     Indication: APPETITE DISORDER
     Dosage: 2MG TID AC
  17. SYNTHROID [Concomitant]
     Indication: THYROID DISORDER
     Route: 048
  18. JAMP-CALCIUM + VITAMIN D [Concomitant]
     Indication: MINERAL SUPPLEMENTATION
     Dosage: 500MG CALCIUM+D40, 2 IN 1 DAY
  19. NOVO-GESIC [Concomitant]
     Indication: PAIN
     Dosage: 2 EVERY 4 HOURS AS NEEDED
     Route: 050
  20. JAMP-CALCIUM + VITAMIN D [Concomitant]
     Indication: VITAMIN SUPPLEMENTATION
  21. ANTIBIOTIC [Suspect]
     Indication: PRODUCT USED FOR UNKNOWN INDICATION
  22. OXAZEPAM [Concomitant]
     Indication: PRODUCT USED FOR UNKNOWN INDICATION
     Dosage: 15 MG DAILY
     Route: 048
  23. SODIUM CHLORIDE [Concomitant]
     Indication: PRODUCT USED FOR UNKNOWN INDICATION
     Route: 048

REACTIONS (10)
  - MALIGNANT PLEURAL EFFUSION [None]
  - AORTIC ANEURYSM [None]
  - PNEUMONIA [None]
  - ASTHENIA [None]
  - DIARRHOEA [None]
  - METASTATIC NEOPLASM [None]
  - GENERAL PHYSICAL HEALTH DETERIORATION [None]
  - CLOSTRIDIAL INFECTION [None]
  - DECREASED APPETITE [None]
  - DYSPHAGIA [None]
